FAERS Safety Report 15619336 (Version 1)
Quarter: 2018Q4

REPORT INFORMATION
  Report Type: Spontaneous
  Country: US (occurrence: US)
  Receive Date: 20181115
  Receipt Date: 20181115
  Transmission Date: 20190205
  Serious: No
  Sender: FDA-Public Use
  Company Number: US-ASTRAZENECA-2018SF38388

PATIENT
  Age: 56 Year
  Sex: Male
  Weight: 76.2 kg

DRUGS (2)
  1. BYDUREON [Suspect]
     Active Substance: EXENATIDE
     Indication: BLOOD GLUCOSE
     Route: 058
     Dates: start: 2008
  2. TOUJEO [Concomitant]
     Active Substance: INSULIN GLARGINE
     Dosage: 40[IU]/ML DAILY
     Route: 058

REACTIONS (3)
  - Needle issue [Recovered/Resolved]
  - Injection site mass [Not Recovered/Not Resolved]
  - Injection site pain [Recovered/Resolved]

NARRATIVE: CASE EVENT DATE: 2008
